FAERS Safety Report 8315244-6 (Version None)
Quarter: 2012Q2

REPORT INFORMATION
  Report Type: 
  Country: None (occurrence: None)
  Receive Date: 20120426
  Receipt Date: 20120420
  Transmission Date: 20120825
  Serious: Yes (Hospitalization, Other)
  Sender: FDA-Public Use
  Company Number: PHHO2011NL01329

PATIENT
  Sex: Male
  Weight: 84.3 kg

DRUGS (3)
  1. PREDNISOLONE [Suspect]
     Indication: RENAL TRANSPLANT
     Dosage: 5 MG, QD
     Route: 048
     Dates: start: 20100907
  2. AEB071 [Suspect]
     Indication: RENAL TRANSPLANT
     Dosage: 200 MG, BID
     Route: 048
     Dates: start: 20100908
  3. CERTICAN [Suspect]
     Indication: RENAL TRANSPLANT
     Dosage: 0.25 MG, BID
     Route: 048
     Dates: start: 20100907

REACTIONS (6)
  - UPPER-AIRWAY COUGH SYNDROME [None]
  - COUGH [None]
  - GASTROENTERITIS [None]
  - PYREXIA [None]
  - PNEUMOCOCCAL SEPSIS [None]
  - INFECTION [None]
